FAERS Safety Report 17274950 (Version 1)
Quarter: 2020Q1

REPORT INFORMATION
  Report Type: Spontaneous
  Country: US (occurrence: US)
  Receive Date: 20200116
  Receipt Date: 20200116
  Transmission Date: 20200409
  Serious: No
  Sender: FDA-Public Use
  Company Number: US-LUPIN PHARMACEUTICALS INC.-2019-07532

PATIENT
  Sex: Female

DRUGS (3)
  1. CLOBETASOL PROPIONATE TOPICAL SOLUTION USP, 0.05 % [Suspect]
     Active Substance: CLOBETASOL PROPIONATE
     Indication: LICHEN PLANOPILARIS
     Dosage: UNK UNK, QD
     Route: 061
  2. CLOBETASOL PROPIONATE TOPICAL SOLUTION USP, 0.05 % [Suspect]
     Active Substance: CLOBETASOL PROPIONATE
     Indication: LICHEN PLANOPILARIS
  3. ESTRING [Concomitant]
     Active Substance: ESTRADIOL
     Indication: PRODUCT USED FOR UNKNOWN INDICATION
     Dosage: UNK
     Route: 065

REACTIONS (4)
  - Application site pruritus [Unknown]
  - Hair texture abnormal [Unknown]
  - Application site burn [Unknown]
  - Product storage error [Unknown]
